FAERS Safety Report 17039645 (Version 2)
Quarter: 2019Q4

REPORT INFORMATION
  Report Type: Report from Study
  Country: None (occurrence: GR)
  Receive Date: 20191116
  Receipt Date: 20191210
  Transmission Date: 20200122
  Serious: Yes (Hospitalization)
  Sender: FDA-Public Use
  Company Number: GR-ABBVIE-19K-066-3000289-00

PATIENT
  Sex: Female
  Weight: 54 kg

DRUGS (2)
  1. DUODOPA [Suspect]
     Active Substance: CARBIDOPA\LEVODOPA
     Indication: PARKINSON^S DISEASE
     Dosage: MD: 5.3ML; CR: 2.4ML/H; ED: 2.4ML
     Route: 050
     Dates: start: 20170119, end: 2019
  2. DUODOPA [Suspect]
     Active Substance: CARBIDOPA\LEVODOPA
     Dosage: MD: 5.3ML; CR: 3ML/H; ED: 2.4ML
     Route: 050
     Dates: start: 2019

REACTIONS (3)
  - Streptococcal infection [Recovered/Resolved]
  - Osteomyelitis bacterial [Recovered/Resolved]
  - Musculoskeletal stiffness [Recovered/Resolved]

NARRATIVE: CASE EVENT DATE: 2019
